FAERS Safety Report 14903604 (Version 2)
Quarter: 2018Q2

REPORT INFORMATION
  Report Type: Spontaneous
  Country: BR (occurrence: BR)
  Receive Date: 20180516
  Receipt Date: 20180606
  Transmission Date: 20180711
  Serious: Yes (Other)
  Sender: FDA-Public Use
  Company Number: BR-PFIZER INC-2018160315

PATIENT
  Age: 32 Year
  Sex: Female
  Weight: 74 kg

DRUGS (1)
  1. DEPO-PROVERA [Suspect]
     Active Substance: MEDROXYPROGESTERONE ACETATE
     Indication: CONTRACEPTION
     Dosage: 150 MG, EVERY 3 MONTHS, MAKING USE OF EACH DAY 6 OF EACH QUARTER
     Dates: start: 201504, end: 20180106

REACTIONS (9)
  - Risk of future pregnancy miscarriage [Not Recovered/Not Resolved]
  - Drug ineffective [Unknown]
  - Menstruation normal [Recovered/Resolved]
  - Unintended pregnancy [Unknown]
  - Product quality issue [Unknown]
  - Vaginal haemorrhage [Recovered/Resolved]
  - Vomiting [Recovered/Resolved]
  - Subchorionic haematoma [Recovering/Resolving]
  - Abdominal pain [Recovered/Resolved]

NARRATIVE: CASE EVENT DATE: 2015
